FAERS Safety Report 12318799 (Version 3)
Quarter: 2016Q2

REPORT INFORMATION
  Report Type: Report from Study
  Country: FR (occurrence: FR)
  Receive Date: 20160429
  Receipt Date: 20160531
  Transmission Date: 20160815
  Serious: Yes (Hospitalization, Disabling)
  Sender: FDA-Public Use
  Company Number: FR-JNJFOC-20160301624

PATIENT
  Age: 52 Year
  Sex: Male
  Weight: 78 kg

DRUGS (4)
  1. IBRUTINIB [Suspect]
     Active Substance: IBRUTINIB
     Indication: OCULAR LYMPHOMA
     Route: 048
     Dates: start: 20160322
  2. IBRUTINIB [Suspect]
     Active Substance: IBRUTINIB
     Indication: CENTRAL NERVOUS SYSTEM LYMPHOMA
     Route: 048
     Dates: start: 20160120, end: 20160224
  3. IBRUTINIB [Suspect]
     Active Substance: IBRUTINIB
     Indication: CENTRAL NERVOUS SYSTEM LYMPHOMA
     Route: 048
     Dates: start: 20160322
  4. IBRUTINIB [Suspect]
     Active Substance: IBRUTINIB
     Indication: OCULAR LYMPHOMA
     Route: 048
     Dates: start: 20160120, end: 20160224

REACTIONS (2)
  - Bronchopulmonary aspergillosis [Recovered/Resolved]
  - Respiratory distress [Recovered/Resolved]

NARRATIVE: CASE EVENT DATE: 20160225
